FAERS Safety Report 7779724-4 (Version None)
Quarter: 2011Q3

REPORT INFORMATION
  Report Type: 
  Country: None (occurrence: None)
  Receive Date: 20110927
  Receipt Date: 20110915
  Transmission Date: 20111222
  Serious: Yes (Hospitalization)
  Sender: FDA-Public Use
  Company Number: DE-PFIZER INC-2011219265

PATIENT
  Age: 19 Year
  Sex: Male
  Weight: 57 kg

DRUGS (8)
  1. KEPPRA [Concomitant]
     Indication: EPILEPSY
     Dosage: 500 MG, 2X/DAY
     Route: 048
     Dates: start: 20101201
  2. DEXAMETHASONE [Concomitant]
     Indication: PROPHYLAXIS
     Dosage: 1 MG, 1X/DAY
     Route: 048
     Dates: start: 20100901, end: 20110713
  3. CALCIUM CARBONATE [Concomitant]
     Indication: PROPHYLAXIS
     Dosage: 500 MG, 2X/DAY
     Route: 048
     Dates: start: 20110523, end: 20110828
  4. NALOXONE/OXYCODONE [Concomitant]
     Indication: TUMOUR PAIN
     Dosage: 20/10 MG, 2X/DAY
     Dates: start: 20110101
  5. PANTOPRAZOLE [Concomitant]
     Indication: PROPHYLAXIS
     Dosage: 40 MG, 1X/DAY
     Route: 048
     Dates: start: 20100901
  6. CRIZOTINIB [Suspect]
     Indication: NON-SMALL CELL LUNG CANCER
     Dosage: 250 MG, 2X/DAY
     Route: 048
     Dates: start: 20110511
  7. TORSEMIDE [Concomitant]
     Indication: OEDEMA PERIPHERAL
     Dosage: 5 MG, 1X/DAY
     Route: 048
     Dates: start: 20110706
  8. LOPERAMIDE [Concomitant]
     Indication: DIARRHOEA
     Dosage: 2 MG, AS NEEDED
     Route: 048
     Dates: start: 20110622

REACTIONS (3)
  - ABDOMINAL SYMPTOM [None]
  - DIARRHOEA [None]
  - NAUSEA [None]
